FAERS Safety Report 6708620-6 (Version None)
Quarter: 2010Q2

REPORT INFORMATION
  Report Type: 
  Country: None (occurrence: None)
  Receive Date: 20100503
  Receipt Date: 20100422
  Transmission Date: 20101027
  Serious: Yes (Death, Hospitalization)
  Sender: FDA-Public Use
  Company Number: BR-ELI_LILLY_AND_COMPANY-BR201003008113

PATIENT
  Sex: Female
  Weight: 58 kg

DRUGS (3)
  1. FORTEO [Suspect]
     Indication: OSTEOPOROSIS
     Dosage: 20 UG, DAILY (1/D)
     Route: 058
     Dates: start: 20090401, end: 20100101
  2. COUMADIN [Concomitant]
     Indication: BLOOD DISORDER
     Dosage: 3.5 MG, 2/D
  3. PREDSIM [Concomitant]
     Indication: RENAL DISORDER
     Dosage: 60 MG, DAILY (1/D)

REACTIONS (4)
  - HOSPITALISATION [None]
  - PNEUMONIA [None]
  - RENAL FAILURE [None]
  - URINARY TRACT INFECTION [None]
